FAERS Safety Report 15337293 (Version 1)
Quarter: 2018Q3

REPORT INFORMATION
  Report Type: Spontaneous
  Country: US (occurrence: US)
  Receive Date: 20180831
  Receipt Date: 20180831
  Transmission Date: 20181010
  Serious: No
  Sender: FDA-Public Use
  Company Number: US-GLENMARK PHARMACEUTICALS-2018GMK036075

PATIENT

DRUGS (2)
  1. MUPIROCIN. [Suspect]
     Active Substance: MUPIROCIN
     Indication: STAPHYLOCOCCAL INFECTION
     Dosage: UNK, TID (AT 8?HOUR INTERVAL)
     Route: 045
     Dates: start: 20180601, end: 20180612
  2. BACTRIM [Concomitant]
     Active Substance: SULFAMETHOXAZOLE\TRIMETHOPRIM
     Indication: STAPHYLOCOCCAL INFECTION
     Dosage: UNK
     Route: 048

REACTIONS (11)
  - Hypersensitivity [Recovered/Resolved]
  - Nasal dryness [Recovered/Resolved]
  - Epistaxis [Recovered/Resolved]
  - Product use issue [Unknown]
  - Rhinorrhoea [Recovered/Resolved]
  - Incorrect route of drug administration [Unknown]
  - Nasal inflammation [Recovered/Resolved]
  - Rhinalgia [Recovered/Resolved]
  - Nasal mucosal disorder [Recovered/Resolved]
  - Nasal discomfort [Recovered/Resolved]
  - Insurance issue [Unknown]

NARRATIVE: CASE EVENT DATE: 20180601
